FAERS Safety Report 26011613 (Version 1)
Quarter: 2025Q4

REPORT INFORMATION
  Report Type: Spontaneous
  Country: KR (occurrence: KR)
  Receive Date: 20251107
  Receipt Date: 20251107
  Transmission Date: 20260118
  Serious: Yes (Other)
  Sender: MYLAN
  Company Number: KR-MYLANLABS-2025M1093630

PATIENT
  Age: 88 Year
  Sex: Female

DRUGS (20)
  1. NEURONTIN [Suspect]
     Active Substance: GABAPENTIN
     Indication: Intervertebral disc protrusion
     Dosage: 100 MILLIGRAM, TID
     Dates: start: 20220118, end: 20220314
  2. NEURONTIN [Suspect]
     Active Substance: GABAPENTIN
     Dosage: 100 MILLIGRAM, TID
     Route: 065
     Dates: start: 20220118, end: 20220314
  3. NEURONTIN [Suspect]
     Active Substance: GABAPENTIN
     Dosage: 100 MILLIGRAM, TID
     Route: 065
     Dates: start: 20220118, end: 20220314
  4. NEURONTIN [Suspect]
     Active Substance: GABAPENTIN
     Dosage: 100 MILLIGRAM, TID
     Dates: start: 20220118, end: 20220314
  5. QUETIAPINE FUMARATE [Suspect]
     Active Substance: QUETIAPINE FUMARATE
     Indication: Intervertebral disc protrusion
     Dosage: 25 MILLIGRAM, TID
     Dates: start: 20220116, end: 20220313
  6. QUETIAPINE FUMARATE [Suspect]
     Active Substance: QUETIAPINE FUMARATE
     Dosage: 25 MILLIGRAM, TID
     Route: 065
     Dates: start: 20220116, end: 20220313
  7. QUETIAPINE FUMARATE [Suspect]
     Active Substance: QUETIAPINE FUMARATE
     Dosage: 25 MILLIGRAM, TID
     Route: 065
     Dates: start: 20220116, end: 20220313
  8. QUETIAPINE FUMARATE [Suspect]
     Active Substance: QUETIAPINE FUMARATE
     Dosage: 25 MILLIGRAM, TID
     Dates: start: 20220116, end: 20220313
  9. LINEZOLID [Suspect]
     Active Substance: LINEZOLID
     Indication: Intervertebral disc protrusion
     Dosage: 600 MILLIGRAM, BID
     Dates: start: 20220225, end: 20220311
  10. LINEZOLID [Suspect]
     Active Substance: LINEZOLID
     Dosage: 600 MILLIGRAM, BID
     Route: 065
     Dates: start: 20220225, end: 20220311
  11. LINEZOLID [Suspect]
     Active Substance: LINEZOLID
     Dosage: 600 MILLIGRAM, BID
     Route: 065
     Dates: start: 20220225, end: 20220311
  12. LINEZOLID [Suspect]
     Active Substance: LINEZOLID
     Dosage: 600 MILLIGRAM, BID
     Dates: start: 20220225, end: 20220311
  13. CILASTATIN SODIUM [Suspect]
     Active Substance: CILASTATIN SODIUM
     Indication: Intervertebral disc protrusion
     Dosage: 500 MILLIGRAM, QID
     Dates: start: 20220304, end: 20220311
  14. CILASTATIN SODIUM [Suspect]
     Active Substance: CILASTATIN SODIUM
     Dosage: 500 MILLIGRAM, QID
     Route: 065
     Dates: start: 20220304, end: 20220311
  15. CILASTATIN SODIUM [Suspect]
     Active Substance: CILASTATIN SODIUM
     Dosage: 500 MILLIGRAM, QID
     Route: 065
     Dates: start: 20220304, end: 20220311
  16. CILASTATIN SODIUM [Suspect]
     Active Substance: CILASTATIN SODIUM
     Dosage: 500 MILLIGRAM, QID
     Dates: start: 20220304, end: 20220311
  17. IMIPENEM [Concomitant]
     Active Substance: IMIPENEM
     Dosage: UNK
  18. IMIPENEM [Concomitant]
     Active Substance: IMIPENEM
     Dosage: UNK
     Route: 065
  19. IMIPENEM [Concomitant]
     Active Substance: IMIPENEM
     Dosage: UNK
     Route: 065
  20. IMIPENEM [Concomitant]
     Active Substance: IMIPENEM
     Dosage: UNK

REACTIONS (3)
  - Thrombocytopenia [Recovering/Resolving]
  - Leukopenia [Recovering/Resolving]
  - Product use in unapproved indication [Unknown]

NARRATIVE: CASE EVENT DATE: 20220118
